FAERS Safety Report 4308780-0 (Version None)
Quarter: 2004Q1

REPORT INFORMATION
  Report Type: 
  Country: None (occurrence: None)
  Receive Date: 20040227
  Receipt Date: 20040227
  Transmission Date: 20041129
  Serious: Yes (Other)
  Sender: FDA-Public Use
  Company Number: None

PATIENT
  Age: 65 Year
  Sex: Female
  Weight: 59.8748 kg

DRUGS (5)
  1. MIRTAZAPINE [Suspect]
     Dosage: 30 MG @ HS -PO
     Route: 048
     Dates: start: 20030501
  2. XANAX [Concomitant]
  3. ATENOLOL [Concomitant]
  4. ACTONEL [Concomitant]
  5. COZAAR [Concomitant]

REACTIONS (2)
  - DIZZINESS [None]
  - DYSPNOEA [None]
